FAERS Safety Report 16146013 (Version 1)
Quarter: 2019Q2

REPORT INFORMATION
  Report Type: Spontaneous
  Country: US (occurrence: US)
  Receive Date: 20190402
  Receipt Date: 20190402
  Transmission Date: 20190711
  Serious: No
  Sender: FDA-Public Use
  Company Number: US-AMGEN INC.-USASP2019049167

PATIENT
  Age: 62 Year
  Sex: Female

DRUGS (8)
  1. AIMOVIG [Suspect]
     Active Substance: ERENUMAB-AOOE
     Indication: MIGRAINE
     Dosage: 70 MILLIGRAM, QMO
     Route: 065
     Dates: start: 2018
  2. TOPIRAMATE. [Concomitant]
     Active Substance: TOPIRAMATE
     Dosage: UNK
  3. TRAZODONE [Concomitant]
     Active Substance: TRAZODONE HYDROCHLORIDE
     Dosage: UNK
  4. AIMOVIG [Suspect]
     Active Substance: ERENUMAB-AOOE
     Dosage: 70 MILLIGRAM, QMO
     Route: 065
  5. BOTOX [Concomitant]
     Active Substance: ONABOTULINUMTOXINA
     Indication: HEADACHE
     Dosage: UNK
  6. AIMOVIG [Suspect]
     Active Substance: ERENUMAB-AOOE
     Dosage: 70 MILLIGRAM, QMO
     Route: 065
  7. AIMOVIG [Suspect]
     Active Substance: ERENUMAB-AOOE
     Dosage: 70 MILLIGRAM, QMO
     Route: 065
  8. BYSTOLIC [Concomitant]
     Active Substance: NEBIVOLOL HYDROCHLORIDE
     Dosage: UNK

REACTIONS (2)
  - Wrong technique in product usage process [Unknown]
  - Product storage error [Unknown]

NARRATIVE: CASE EVENT DATE: 2018
